FAERS Safety Report 7830841-X (Version None)
Quarter: 2011Q4

REPORT INFORMATION
  Report Type: 
  Country: None (occurrence: None)
  Receive Date: 20111021
  Receipt Date: 20111019
  Transmission Date: 20120403
  Serious: Yes (Other)
  Sender: FDA-Public Use
  Company Number: AU-PFIZER INC-2011242903

PATIENT
  Age: 70 Year
  Sex: Male

DRUGS (8)
  1. CLOPIDOGREL [Concomitant]
     Dosage: UNK
  2. LOMOTIL [Concomitant]
     Dosage: UNK
  3. ZIMSTAT [Concomitant]
     Dosage: UNK
  4. ABILIFY [Concomitant]
     Dosage: UNK
  5. PERINDO [Concomitant]
     Dosage: UNK
  6. ZIPRASIDONE HYDROCHLORIDE [Suspect]
     Indication: SCHIZOPHRENIA
     Dosage: 40 MG, 2X/DAY
     Dates: start: 20110501
  7. ELEVAL [Concomitant]
     Dosage: UNK
  8. OXAZEPAM [Concomitant]
     Dosage: UNK

REACTIONS (8)
  - ASTHENIA [None]
  - ABDOMINAL DISCOMFORT [None]
  - MUSCULOSKELETAL STIFFNESS [None]
  - MENTAL DISORDER [None]
  - SLEEP DISORDER [None]
  - DYSKINESIA [None]
  - PALPITATIONS [None]
  - DIZZINESS [None]
